FAERS Safety Report 21707016 (Version 1)
Quarter: 2022Q4

REPORT INFORMATION
  Report Type: Spontaneous
  Country: US (occurrence: US)
  Receive Date: 20221209
  Receipt Date: 20221209
  Transmission Date: 20230113
  Serious: Yes (Death, Other)
  Sender: FDA-Public Use
  Company Number: US-FreseniusKabi-FK202217524

PATIENT
  Age: 53 Year
  Sex: Male

DRUGS (6)
  1. DEXAMETHASONE [Suspect]
     Active Substance: DEXAMETHASONE
     Indication: Brain oedema
  2. DEXAMETHASONE [Suspect]
     Active Substance: DEXAMETHASONE
     Dosage: INCREASING DOSES OF DEXAMETHASONE.
  3. METHYLPREDNISOLONE [Suspect]
     Active Substance: METHYLPREDNISOLONE
     Indication: COVID-19 pneumonia
  4. REMDESIVIR [Concomitant]
     Active Substance: REMDESIVIR
     Indication: COVID-19 pneumonia
  5. SODIUM CHLORIDE [Concomitant]
     Active Substance: SODIUM CHLORIDE
     Indication: Brain oedema
  6. MANNITOL [Concomitant]
     Active Substance: MANNITOL
     Indication: Brain oedema

REACTIONS (5)
  - Brain abscess [Fatal]
  - Cerebral haemorrhage [Fatal]
  - Brain stem haemorrhage [Fatal]
  - Mucormycosis [Fatal]
  - Hyperglycaemia [Unknown]
